FAERS Safety Report 6256547-9 (Version None)
Quarter: 2009Q3

REPORT INFORMATION
  Report Type: 
  Country: None (occurrence: None)
  Receive Date: 20090706
  Receipt Date: 20090630
  Transmission Date: 20100115
  Serious: No
  Sender: FDA-Public Use
  Company Number: AU-JNJFOC-20090700027

PATIENT
  Sex: Male

DRUGS (5)
  1. DURAGESIC-100 [Suspect]
     Route: 062
  2. DURAGESIC-100 [Suspect]
     Indication: DRUG USE FOR UNKNOWN INDICATION
     Route: 062
  3. OXYCONTIN [Concomitant]
     Route: 065
  4. OXYCODONE [Concomitant]
     Route: 065
  5. OXYCODONE [Concomitant]
     Dosage: MIDDAY
     Route: 065

REACTIONS (4)
  - BREAKTHROUGH PAIN [None]
  - INADEQUATE ANALGESIA [None]
  - PRODUCT QUALITY ISSUE [None]
  - WRONG TECHNIQUE IN DRUG USAGE PROCESS [None]
